FAERS Safety Report 9843578 (Version 2)
Quarter: 2013Q4

REPORT INFORMATION
  Report Type: Spontaneous
  Country: US (occurrence: None)
  Receive Date: 20131223
  Receipt Date: 20131223
  Transmission Date: 20140711
  Serious: Yes (Other)
  Sender: FDA-Public Use
  Company Number: 220281LEO

PATIENT
  Age: 67 Year
  Sex: Female

DRUGS (4)
  1. PICATO [Suspect]
     Indication: ACTINIC KERATOSIS
     Dosage: TOPICAL
     Route: 061
     Dates: start: 20130120, end: 20130121
  2. COZAAR (LOSARTAN POTASSIUM) (50 MILLIGRAM, TABLETS) (LOSARTAN POTASSIUM) [Concomitant]
  3. ASA (ACETYLSALICYIC ACID) [Concomitant]
  4. SPRIVA (TIOTROPIUM BROMIDE) [Concomitant]

REACTIONS (3)
  - Drug ineffective [None]
  - Drug administered at inappropriate site [None]
  - No adverse event [None]
